FAERS Safety Report 8291026 (Version 6)
Quarter: 2014Q1

REPORT INFORMATION
  Report Type: Report from Study
  Country: BR (occurrence: BR)
  Receive Date: 20111214
  Receipt Date: 20140314
  Transmission Date: 20141002
  Serious: Yes (Other)
  Sender: FDA-Public Use
  Company Number: BR-ROCHE-729103

PATIENT
  Age: 49 Year
  Sex: Female
  Weight: 71 kg

DRUGS (21)
  1. MABTHERA [Suspect]
     Indication: RHEUMATOID ARTHRITIS
     Dosage: FORM:INFUSION;100MG/10ML
     Route: 042
  2. MABTHERA [Suspect]
     Route: 042
  3. MABTHERA [Suspect]
     Dosage: DOSE: 100MG/10 ML, FREQUENCY: 1000 MG IN EACH DOSE
     Route: 042
     Dates: start: 20100415, end: 20100501
  4. MABTHERA [Suspect]
     Route: 042
  5. MABTHERA [Suspect]
     Route: 042
     Dates: start: 20110411, end: 20110425
  6. MABTHERA [Suspect]
     Route: 042
  7. MABTHERA [Suspect]
     Route: 042
  8. CARVEDILOL [Concomitant]
     Route: 065
  9. OMEPRAZOLE [Concomitant]
     Route: 065
  10. OMEPRAZOLE [Concomitant]
     Route: 065
  11. FLANCOX [Concomitant]
     Route: 065
  12. CYMBALTA [Concomitant]
     Route: 065
  13. LEXOTAN [Concomitant]
     Route: 065
  14. PURAN T4 [Concomitant]
     Route: 065
  15. SPIROCTAN [Concomitant]
  16. ALENDRONATE SODIUM [Concomitant]
  17. METHOTREXATE [Concomitant]
  18. LOSARTAN [Concomitant]
  19. PREDNISONE [Concomitant]
     Route: 065
  20. DEPURA [Concomitant]
  21. FOLIC ACID [Concomitant]

REACTIONS (17)
  - Bone disorder [Not Recovered/Not Resolved]
  - Osteopenia [Not Recovered/Not Resolved]
  - Musculoskeletal pain [Not Recovered/Not Resolved]
  - Arthritis [Not Recovered/Not Resolved]
  - Cardiac disorder [Unknown]
  - Arthralgia [Not Recovered/Not Resolved]
  - Thyroid function test abnormal [Recovered/Resolved]
  - Arthralgia [Unknown]
  - Malaise [Not Recovered/Not Resolved]
  - Urinary tract infection [Unknown]
  - Hypotension [Unknown]
  - Fibromyalgia [Recovered/Resolved]
  - Fall [Unknown]
  - Ligament sprain [Recovered/Resolved]
  - Limb injury [Unknown]
  - Head injury [Recovered/Resolved]
  - Arthritis infective [Not Recovered/Not Resolved]
